FAERS Safety Report 16678881 (Version 2)
Quarter: 2019Q3

REPORT INFORMATION
  Report Type: Report from Study
  Country: TW (occurrence: TW)
  Receive Date: 20190807
  Receipt Date: 20190820
  Transmission Date: 20191004
  Serious: Yes (Other)
  Sender: FDA-Public Use
  Company Number: TW-INCYTE CORPORATION-2019IN008010

PATIENT

DRUGS (7)
  1. BIOMYCIN [Concomitant]
     Indication: SURGERY
     Dosage: 40 MG, BID
     Route: 065
     Dates: start: 20180417, end: 20180424
  2. JAKAVI [Suspect]
     Active Substance: RUXOLITINIB
     Indication: MYELOFIBROSIS
     Dosage: 20 MG, QD
     Route: 048
     Dates: start: 20161214, end: 20170402
  3. CELECOXIB. [Concomitant]
     Active Substance: CELECOXIB
     Indication: ANKYLOSING SPONDYLITIS
     Dosage: 200 MG, QD
     Route: 048
     Dates: start: 20180813, end: 20180921
  4. JAKAVI [Suspect]
     Active Substance: RUXOLITINIB
     Dosage: 30 MG, QD
     Route: 048
     Dates: start: 20170403, end: 20180109
  5. JAKAVI [Suspect]
     Active Substance: RUXOLITINIB
     Dosage: 40 MG, QD
     Route: 048
     Dates: start: 20180110
  6. DICLOFENAC POTASSIUM. [Concomitant]
     Active Substance: DICLOFENAC POTASSIUM
     Indication: SURGERY
     Dosage: 25 MG, TID
     Route: 048
     Dates: start: 20180417, end: 20180420
  7. CURAM [Concomitant]
     Active Substance: AMOXICILLIN\CLAVULANATE POTASSIUM
     Indication: SURGERY
     Dosage: 1 G, Q12H
     Route: 048
     Dates: start: 20180417, end: 20180420

REACTIONS (6)
  - Head and neck cancer [Recovering/Resolving]
  - Neck pain [Unknown]
  - Soft tissue neoplasm [Recovered/Resolved]
  - Second primary malignancy [Recovering/Resolving]
  - Bone neoplasm [Recovered/Resolved]
  - Neoplasm skin [Recovered/Resolved]

NARRATIVE: CASE EVENT DATE: 20180330
